FAERS Safety Report 19909914 (Version 7)
Quarter: 2022Q2

REPORT INFORMATION
  Report Type: Report from Study
  Country: JP (occurrence: JP)
  Receive Date: 20211003
  Receipt Date: 20220616
  Transmission Date: 20220720
  Serious: Yes (Other)
  Sender: FDA-Public Use
  Company Number: NVSJ2021JP014247

PATIENT
  Age: 78 Year
  Sex: Female
  Weight: 34.3 kg

DRUGS (5)
  1. MEKINIST [Suspect]
     Active Substance: TRAMETINIB DIMETHYL SULFOXIDE
     Indication: Gastrointestinal stromal tumour
     Dosage: 2 MG, QD
     Route: 048
     Dates: start: 20210519, end: 20210601
  2. MEKINIST [Suspect]
     Active Substance: TRAMETINIB DIMETHYL SULFOXIDE
     Dosage: 1.5 MG, QD
     Route: 048
     Dates: start: 20210616, end: 20210713
  3. MEKINIST [Suspect]
     Active Substance: TRAMETINIB DIMETHYL SULFOXIDE
     Dosage: 1.0 MG, QD
     Route: 048
     Dates: start: 20210804, end: 20210908
  4. MEKINIST [Suspect]
     Active Substance: TRAMETINIB DIMETHYL SULFOXIDE
     Dosage: 1.0 MG, QD
     Route: 048
     Dates: start: 20210922
  5. FERROUS SULFATE [Concomitant]
     Active Substance: FERROUS SULFATE
     Indication: Iron deficiency anaemia
     Dosage: 105 MG, QD
     Route: 048
     Dates: start: 20210420

REACTIONS (8)
  - Pneumonia [Recovering/Resolving]
  - Blood creatine phosphokinase increased [Recovered/Resolved]
  - Hypothyroidism [Not Recovered/Not Resolved]
  - Deafness [Recovered/Resolved]
  - Anaemia [Recovering/Resolving]
  - Fatigue [Recovered/Resolved]
  - Fatigue [Recovered/Resolved]
  - Blood creatine phosphokinase increased [Recovered/Resolved]

NARRATIVE: CASE EVENT DATE: 20210602
